FAERS Safety Report 7070354-9 (Version None)
Quarter: 2010Q4

REPORT INFORMATION
  Report Type: 
  Country: None (occurrence: None)
  Receive Date: 20101028
  Receipt Date: 20101022
  Transmission Date: 20110411
  Serious: No
  Sender: FDA-Public Use
  Company Number: US-WYE-H18297010

PATIENT
  Sex: Male
  Weight: 98.06 kg

DRUGS (1)
  1. PROTONIX [Suspect]
     Indication: GASTROOESOPHAGEAL REFLUX DISEASE
     Route: 048
     Dates: start: 20100101

REACTIONS (3)
  - DRUG SCREEN FALSE POSITIVE [None]
  - HYPERTENSION [None]
  - IRRITABLE BOWEL SYNDROME [None]
